FAERS Safety Report 10035684 (Version 1)
Quarter: 2014Q1

REPORT INFORMATION
  Report Type: Spontaneous
  Country: US (occurrence: US)
  Receive Date: 20140325
  Receipt Date: 20140325
  Transmission Date: 20141002
  Serious: Yes (Hospitalization)
  Sender: FDA-Public Use
  Company Number: US-GLAXOSMITHKLINE-A1064639A

PATIENT
  Age: 68 Year
  Sex: Female

DRUGS (1)
  1. COREG CR [Suspect]
     Indication: CARDIAC DISORDER
     Dosage: 40MG UNKNOWN
     Route: 065
     Dates: start: 20090206

REACTIONS (3)
  - Fall [Unknown]
  - Thrombosis [Unknown]
  - Fracture [Unknown]
